FAERS Safety Report 10572904 (Version 1)
Quarter: 2014Q4

REPORT INFORMATION
  Report Type: Spontaneous
  Country: US (occurrence: US)
  Receive Date: 20141110
  Receipt Date: 20141110
  Transmission Date: 20150529
  Serious: No
  Sender: FDA-Public Use
  Company Number: US-TEVA-456533USA

PATIENT
  Sex: Female
  Weight: 58.11 kg

DRUGS (1)
  1. CAMRESELO [Suspect]
     Active Substance: ETHINYL ESTRADIOL\LEVONORGESTREL
     Indication: CONTRACEPTION

REACTIONS (1)
  - Metrorrhagia [Not Recovered/Not Resolved]
